FAERS Safety Report 8134231-4 (Version None)
Quarter: 2012Q1

REPORT INFORMATION
  Report Type: 
  Country: None (occurrence: None)
  Receive Date: 20120209
  Receipt Date: 20120127
  Transmission Date: 20120608
  Serious: Yes (Hospitalization, Other)
  Sender: FDA-Public Use
  Company Number: 2012MA001269

PATIENT
  Sex: Female

DRUGS (18)
  1. HUMALOG [Concomitant]
  2. ALBUTEROL [Concomitant]
  3. METFORMIN HCL [Concomitant]
  4. LASIX [Concomitant]
  5. HYDRALAZINE HCL [Concomitant]
  6. AMITRIPTYLINE HCL [Concomitant]
  7. PHENERGAN [Concomitant]
  8. FLONASE [Concomitant]
  9. ISOSORBIDE DINITRATE [Concomitant]
  10. ASPIRIN [Concomitant]
  11. ANTIVERT [Concomitant]
  12. DIGOXIN [Suspect]
     Dosage: 0.25 MG;QD;PO
     Route: 048
     Dates: start: 20060104, end: 20070203
  13. CLONIDINE [Concomitant]
  14. SYNTHROID [Concomitant]
  15. FOLBEE [Concomitant]
  16. INSULIN [Concomitant]
  17. MOTRIN [Concomitant]
  18. ALPRAZOLAM [Concomitant]

REACTIONS (24)
  - CONDITION AGGRAVATED [None]
  - HYPERKALAEMIA [None]
  - NEUROPATHY PERIPHERAL [None]
  - AORTIC STENOSIS [None]
  - RHONCHI [None]
  - URINARY TRACT INFECTION [None]
  - LEUKOCYTOSIS [None]
  - DIABETES MELLITUS INADEQUATE CONTROL [None]
  - VOMITING [None]
  - LOWER RESPIRATORY TRACT INFECTION [None]
  - CHRONIC OBSTRUCTIVE PULMONARY DISEASE [None]
  - TOXICITY TO VARIOUS AGENTS [None]
  - RENAL FAILURE ACUTE [None]
  - ARRHYTHMIA [None]
  - ARTERIOSCLEROSIS CORONARY ARTERY [None]
  - CAROTID ARTERY STENOSIS [None]
  - OROPHARYNGEAL PAIN [None]
  - HYPERTENSIVE HEART DISEASE [None]
  - BLOOD PRESSURE SYSTOLIC INCREASED [None]
  - DYSPNOEA [None]
  - ARTERIOSCLEROSIS [None]
  - NAUSEA [None]
  - HYPERTENSION [None]
  - APHAGIA [None]
